FAERS Safety Report 12832160 (Version 1)
Quarter: 2016Q4

REPORT INFORMATION
  Report Type: Spontaneous
  Country: US (occurrence: US)
  Receive Date: 20161010
  Receipt Date: 20161010
  Transmission Date: 20170207
  Serious: No
  Sender: FDA-Public Use
  Company Number: US-ASTRAZENECA-2014SE15735

PATIENT
  Age: 720 Month
  Sex: Female
  Weight: 103.8 kg

DRUGS (19)
  1. BYETTA [Suspect]
     Active Substance: EXENATIDE
     Indication: BLOOD GLUCAGON ABNORMAL
     Route: 058
     Dates: start: 20081019, end: 20081021
  2. BYETTA [Suspect]
     Active Substance: EXENATIDE
     Indication: BLOOD GLUCAGON ABNORMAL
     Route: 058
     Dates: start: 20081022
  3. GLUCOPHAGE XR [Suspect]
     Active Substance: METFORMIN HYDROCHLORIDE
     Indication: TYPE 2 DIABETES MELLITUS
     Dosage: 500 MG, TWO TIMES A DAY, NON-AZ PRODUCT
     Route: 048
     Dates: start: 200607
  4. BABY ASPIRIN [Concomitant]
     Active Substance: ASPIRIN
  5. TRULICITY [Concomitant]
     Active Substance: DULAGLUTIDE
  6. SITAGLIPTIN PHOSPHATE [Concomitant]
     Active Substance: SITAGLIPTIN PHOSPHATE
     Dates: end: 20081019
  7. BYETTA [Suspect]
     Active Substance: EXENATIDE
     Indication: BLOOD GLUCAGON ABNORMAL
     Route: 058
     Dates: start: 20061208, end: 2007
  8. ATACAND [Suspect]
     Active Substance: CANDESARTAN CILEXETIL
     Indication: BLOOD PRESSURE ABNORMAL
     Route: 048
     Dates: start: 2005
  9. HYDROCHLOROTHIAZIDE. [Concomitant]
     Active Substance: HYDROCHLOROTHIAZIDE
     Indication: BLOOD PRESSURE ABNORMAL
     Route: 048
     Dates: start: 2005
  10. OMEPRAZOLE. [Concomitant]
     Active Substance: OMEPRAZOLE
  11. PROPRANOLOL HYDROCHLORIDE. [Concomitant]
     Active Substance: PROPRANOLOL HYDROCHLORIDE
     Indication: TREMOR
     Dosage: DAILY
     Dates: start: 2015
  12. BYETTA [Suspect]
     Active Substance: EXENATIDE
     Indication: BLOOD GLUCAGON ABNORMAL
     Route: 058
     Dates: start: 20081022
  13. BYDUREON [Suspect]
     Active Substance: EXENATIDE
     Indication: TYPE 2 DIABETES MELLITUS
     Route: 058
     Dates: start: 201403, end: 201409
  14. METFORMIN HYDROCHLORIDE. [Concomitant]
     Active Substance: METFORMIN HYDROCHLORIDE
     Dosage: 1500.0MG UNKNOWN
     Route: 048
     Dates: start: 2007
  15. BYDUREON [Suspect]
     Active Substance: EXENATIDE
     Indication: TYPE 2 DIABETES MELLITUS
     Route: 058
     Dates: start: 201609
  16. METFORMIN HYDROCHLORIDE. [Concomitant]
     Active Substance: METFORMIN HYDROCHLORIDE
     Dosage: 500.0MG UNKNOWN
  17. NEXIUM [Suspect]
     Active Substance: ESOMEPRAZOLE MAGNESIUM
     Indication: GASTRIC DISORDER
     Dosage: GENERIC 40 MG, DAILY
     Route: 048
     Dates: start: 2005
  18. BYDUREON [Suspect]
     Active Substance: EXENATIDE
     Indication: TYPE 2 DIABETES MELLITUS
     Route: 058
     Dates: start: 20140217
  19. DRUG USED IN DIABETES [Concomitant]
     Active Substance: UNSPECIFIED INGREDIENT
     Indication: DIABETES MELLITUS

REACTIONS (14)
  - Nausea [Unknown]
  - Drug ineffective [Unknown]
  - Ulcer [Unknown]
  - Upper respiratory tract infection [Unknown]
  - Abdominal pain [Unknown]
  - Injection site extravasation [Unknown]
  - Blood glucose increased [Not Recovered/Not Resolved]
  - Oropharyngeal pain [Unknown]
  - Injection site haemorrhage [Unknown]
  - Weight decreased [Unknown]
  - Constipation [Unknown]
  - Abdominal pain upper [Unknown]
  - Diarrhoea [Unknown]
  - Dyspepsia [Unknown]

NARRATIVE: CASE EVENT DATE: 200612
